FAERS Safety Report 7731981-6 (Version None)
Quarter: 2011Q3

REPORT INFORMATION
  Report Type: 
  Country: None (occurrence: None)
  Receive Date: 20110906
  Receipt Date: 20110720
  Transmission Date: 20111222
  Serious: No
  Sender: FDA-Public Use
  Company Number: US-AMGEN-USASP2011036954

PATIENT
  Sex: Female

DRUGS (13)
  1. COREG [Concomitant]
     Dosage: 1 MG, QD
  2. LASIX [Concomitant]
     Dosage: UNK
  3. ZEGERID                            /00661201/ [Concomitant]
     Dosage: 1 MG, QD
  4. MELOXICAM [Concomitant]
     Dosage: 1 MG, QD
  5. EVISTA [Concomitant]
     Dosage: 1 MG, QD
  6. CALCIUM WITH VITAMIN D             /00944201/ [Concomitant]
     Dosage: 2 MG, QD
  7. SYNTHROID [Concomitant]
     Dosage: 1 MUG, QD
  8. MULTIVITAMIN                       /00097801/ [Concomitant]
  9. PROLIA [Suspect]
     Indication: OSTEOPOROSIS POSTMENOPAUSAL
     Dosage: 60 MG, Q6MO
     Dates: start: 20110101
  10. QUINAPRIL HCL [Concomitant]
     Dosage: 2 MG, QD
  11. FISH OIL [Concomitant]
  12. CADUET [Concomitant]
     Dosage: UNK UNK, QD
  13. RYTHMOL [Concomitant]
     Dosage: 4 MG, QD

REACTIONS (3)
  - OEDEMA PERIPHERAL [None]
  - PAIN IN EXTREMITY [None]
  - STRESS FRACTURE [None]
